FAERS Safety Report 8152548 (Version 3)
Quarter: 2013Q2

REPORT INFORMATION
  Report Type: Spontaneous
  Country: US (occurrence: US)
  Receive Date: 20110922
  Receipt Date: 20130422
  Transmission Date: 20140414
  Serious: Yes (Other)
  Sender: FDA-Public Use
  Company Number: US-ASTRAZENECA-2011SE12586

PATIENT
  Age: 53 Year
  Sex: Male

DRUGS (5)
  1. SEROQUEL [Suspect]
     Dosage: 25 MG AT NIGHT FOR FOUR DAYS THEN 50 MG AT NIGHT
     Route: 048
     Dates: start: 20031015
  2. TRIAZOLAM [Concomitant]
     Dates: start: 20050216
  3. DIAZEPAM [Concomitant]
     Dates: start: 20050216
  4. WELLBUTRIN XL [Concomitant]
     Route: 048
     Dates: start: 20031015
  5. TOPAMAX [Concomitant]
     Dosage: FOUR DAYS OF 50 MG QHS
     Dates: end: 20031015

REACTIONS (3)
  - Pancreatitis [Unknown]
  - Diabetic coma [Unknown]
  - Type 2 diabetes mellitus [Unknown]
